FAERS Safety Report 8577494-3 (Version None)
Quarter: 2012Q3

REPORT INFORMATION
  Report Type: 
  Country: None (occurrence: None)
  Receive Date: 20120807
  Receipt Date: 20120730
  Transmission Date: 20120928
  Serious: No
  Sender: FDA-Public Use
  Company Number: US-BAYER-2012-004908

PATIENT
  Age: 26 Year
  Sex: Female
  Weight: 68.934 kg

DRUGS (2)
  1. MIRENA [Suspect]
     Indication: CONTRACEPTION
     Dosage: 20 MCG/24HR, CONT
     Route: 015
     Dates: start: 20110728, end: 20110728
  2. MOTRIN [Concomitant]

REACTIONS (6)
  - SYNCOPE [None]
  - VOMITING [None]
  - DEVICE DIFFICULT TO USE [None]
  - PAIN [None]
  - HEADACHE [None]
  - NAUSEA [None]
